FAERS Safety Report 24658264 (Version 1)
Quarter: 2024Q4

REPORT INFORMATION
  Report Type: Spontaneous
  Country: KR (occurrence: KR)
  Receive Date: 20241125
  Receipt Date: 20241125
  Transmission Date: 20250115
  Serious: Yes (Other)
  Sender: ASTELLAS
  Company Number: KR-ASTELLAS-2024-AER-020128

PATIENT
  Sex: Male

DRUGS (2)
  1. MIRABEGRON [Suspect]
     Active Substance: MIRABEGRON
     Indication: Product used for unknown indication
     Route: 065
     Dates: start: 20240514, end: 20240613
  2. TAMSULOSIN [Suspect]
     Active Substance: TAMSULOSIN
     Indication: Product used for unknown indication
     Route: 065
     Dates: start: 20240514, end: 20240613

REACTIONS (2)
  - Erectile dysfunction [Unknown]
  - Ejaculation disorder [Unknown]

NARRATIVE: CASE EVENT DATE: 20240514
